FAERS Safety Report 12900542 (Version 2)
Quarter: 2017Q3

REPORT INFORMATION
  Report Type: Report from Study
  Country: US (occurrence: US)
  Receive Date: 20161101
  Receipt Date: 20170803
  Transmission Date: 20171127
  Serious: Yes (Hospitalization)
  Sender: FDA-Public Use
  Company Number: US-ACTELION-A-NJ2016-144559

PATIENT
  Age: 66 Year
  Sex: Female
  Weight: 96.6 kg

DRUGS (1)
  1. TRACLEER [Suspect]
     Active Substance: BOSENTAN
     Indication: PULMONARY ARTERIAL HYPERTENSION
     Dosage: 125 MG, BID
     Route: 048
     Dates: start: 20120807, end: 201611

REACTIONS (3)
  - Pulmonary hypertension [Unknown]
  - Therapy non-responder [Unknown]
  - Sepsis [Unknown]
